FAERS Safety Report 5428215-4 (Version None)
Quarter: 2007Q3

REPORT INFORMATION
  Report Type: 
  Country: None (occurrence: None)
  Receive Date: 20070828
  Receipt Date: 20070817
  Transmission Date: 20080115
  Serious: Yes (Other)
  Sender: FDA-Public Use
  Company Number: US-PFIZER INC-2007068358

PATIENT
  Sex: Male

DRUGS (1)
  1. NAVANE [Suspect]

REACTIONS (3)
  - ARTHRALGIA [None]
  - CATARACT [None]
  - MUSCLE TIGHTNESS [None]
